FAERS Safety Report 8398213-X (Version None)
Quarter: 2012Q1

REPORT INFORMATION
  Report Type: 
  Country: None (occurrence: None)
  Receive Date: 20120323
  Receipt Date: 20110722
  Transmission Date: 20120608
  Serious: Yes (Other)
  Sender: FDA-Public Use
  Company Number: 163-21880-11011308

PATIENT
  Age: 72 Year
  Sex: Female
  Weight: 56.5 kg

DRUGS (16)
  1. BORTEZOMIB [Concomitant]
  2. REVLIMID [Suspect]
     Indication: MULTIPLE MYELOMA
     Dosage: SEE IMAGE
     Route: 048
     Dates: start: 20100319
  3. REVLIMID [Suspect]
     Indication: MULTIPLE MYELOMA
     Dosage: SEE IMAGE
     Route: 048
     Dates: start: 20101008
  4. REVLIMID [Suspect]
     Indication: MULTIPLE MYELOMA
     Dosage: SEE IMAGE
     Route: 048
     Dates: start: 20110114
  5. REVLIMID [Suspect]
     Indication: MULTIPLE MYELOMA
     Dosage: SEE IMAGE
     Route: 048
     Dates: start: 20100111
  6. NEXIUM [Concomitant]
  7. OXYCONTIN [Concomitant]
  8. MAGNESIUM OXIDE (MAGNESIUM OXIDE) [Concomitant]
  9. SENOKOT-S (SENOKOT-S) [Concomitant]
  10. ACYCLOVIR [Concomitant]
  11. PERCOCET [Concomitant]
  12. ONDANSETRON [Concomitant]
  13. DEXAMETHASONE (DEXAMETHEASONE) [Concomitant]
  14. POTASSIUM CHLORIDE [Concomitant]
  15. METOCLOPRAMIDE [Concomitant]
  16. COUMADIN (WARARIN SODIUM) [Concomitant]

REACTIONS (3)
  - MULTIPLE MYELOMA [None]
  - CONSTIPATION [None]
  - PANCYTOPENIA [None]
